FAERS Safety Report 8849848 (Version 1)
Quarter: 2012Q4

REPORT INFORMATION
  Report Type: 
  Country: US (occurrence: US)
  Receive Date: 20121019
  Receipt Date: 20121019
  Transmission Date: 20130627
  Serious: No
  Sender: FDA-Public Use
  Company Number: US-TEVA-365749USA

PATIENT
  Sex: Male

DRUGS (2)
  1. TREANDA [Suspect]
     Indication: NON-HODGKIN^S LYMPHOMA
     Dosage: 90mg/m2
  2. RITUXIMAB [Suspect]
     Dosage: 375mg

REACTIONS (2)
  - Nervousness [Recovered/Resolved]
  - Hyperhidrosis [Recovered/Resolved]
